FAERS Safety Report 15834735 (Version 2)
Quarter: 2019Q1

REPORT INFORMATION
  Report Type: Spontaneous
  Country: US (occurrence: US)
  Receive Date: 20190116
  Receipt Date: 20190124
  Transmission Date: 20190417
  Serious: Yes (Hospitalization, Other)
  Sender: FDA-Public Use
  Company Number: US-PFIZER INC-2019017598

PATIENT
  Age: 62 Year
  Sex: Female
  Weight: 77.98 kg

DRUGS (4)
  1. NORCO [Concomitant]
     Active Substance: ACETAMINOPHEN\HYDROCODONE BITARTRATE
     Dosage: 4 DF, DAILY
  2. SEROQUEL [Concomitant]
     Active Substance: QUETIAPINE FUMARATE
     Indication: BIPOLAR DISORDER
     Dosage: 25 MG, TWICE A DAY
     Route: 048
  3. CYMBALTA [Concomitant]
     Active Substance: DULOXETINE HYDROCHLORIDE
     Indication: BIPOLAR DISORDER
     Dosage: 60 MG, UNK
     Route: 048
  4. LYRICA [Suspect]
     Active Substance: PREGABALIN
     Indication: FIBROMYALGIA
     Dosage: 225 MG, TWICE A DAY
     Route: 048

REACTIONS (9)
  - Loss of consciousness [Unknown]
  - Pain [Not Recovered/Not Resolved]
  - Speech disorder [Unknown]
  - Cardiac failure [Unknown]
  - Blood potassium decreased [Unknown]
  - Blood pressure increased [Unknown]
  - Muscle spasms [Unknown]
  - Photosensitivity reaction [Unknown]
  - Headache [Not Recovered/Not Resolved]
